FAERS Safety Report 15860307 (Version 2)
Quarter: 2019Q2

REPORT INFORMATION
  Report Type: Spontaneous
  Country: US (occurrence: US)
  Receive Date: 20190123
  Receipt Date: 20190412
  Transmission Date: 20190711
  Serious: No
  Sender: FDA-Public Use
  Company Number: US-PFIZER INC-2019030139

PATIENT
  Age: 69 Year
  Sex: Male
  Weight: 115.65 kg

DRUGS (3)
  1. LYRICA [Suspect]
     Active Substance: PREGABALIN
     Indication: PAIN
     Dosage: 75 MG, UNK
  2. LYRICA [Suspect]
     Active Substance: PREGABALIN
     Dosage: 100 MG, 3X/DAY
     Route: 048
  3. HYDROCODONE [Concomitant]
     Active Substance: HYDROCODONE
     Indication: PAIN
     Dosage: UNK

REACTIONS (11)
  - Dizziness [Unknown]
  - Serum ferritin decreased [Unknown]
  - Fall [Unknown]
  - Middle insomnia [Unknown]
  - Asthenia [Unknown]
  - Back pain [Not Recovered/Not Resolved]
  - Balance disorder [Unknown]
  - Glycosylated haemoglobin increased [Unknown]
  - Peripheral sensorimotor neuropathy [Unknown]
  - Memory impairment [Unknown]
  - Restless legs syndrome [Unknown]
